FAERS Safety Report 20116931 (Version 1)
Quarter: 2021Q4

REPORT INFORMATION
  Report Type: Spontaneous
  Country: US (occurrence: US)
  Receive Date: 20211126
  Receipt Date: 20211126
  Transmission Date: 20220304
  Serious: Yes (Other)
  Sender: FDA-Public Use
  Company Number: US-PURDUE-USA-2021-0223558

PATIENT
  Sex: Male

DRUGS (1)
  1. MORPHINE SULFATE [Suspect]
     Active Substance: MORPHINE SULFATE
     Indication: Injury
     Dosage: 15 MG, Q4H
     Route: 048
     Dates: start: 2005

REACTIONS (3)
  - Drug dependence [Unknown]
  - Nausea [Unknown]
  - Panic attack [Unknown]
